FAERS Safety Report 25096328 (Version 2)
Quarter: 2025Q2

REPORT INFORMATION
  Report Type: Spontaneous
  Country: JP (occurrence: JP)
  Receive Date: 20250319
  Receipt Date: 20250627
  Transmission Date: 20250717
  Serious: Yes (Other)
  Sender: SUNOVION
  Company Number: JP-SMPA-2025SMP001968

PATIENT

DRUGS (2)
  1. LATUDA [Suspect]
     Active Substance: LURASIDONE HYDROCHLORIDE
     Indication: Schizophrenia
     Dosage: 40 MG, QD
     Route: 048
  2. LATUDA [Suspect]
     Active Substance: LURASIDONE HYDROCHLORIDE
     Dosage: 60-80 MG, QD
     Route: 048

REACTIONS (3)
  - Hyperprolactinaemia [Recovered/Resolved]
  - Somnolence [Recovered/Resolved]
  - Menstruation irregular [Recovered/Resolved]
